FAERS Safety Report 6404381-9 (Version None)
Quarter: 2009Q4

REPORT INFORMATION
  Report Type: 
  Country: None (occurrence: None)
  Receive Date: 20091016
  Receipt Date: 20091007
  Transmission Date: 20100525
  Serious: Yes (Hospitalization)
  Sender: FDA-Public Use
  Company Number: CA-JNJFOC-20091001842

PATIENT
  Sex: Male
  Weight: 90.3 kg

DRUGS (2)
  1. GOLIMUMAB [Suspect]
     Route: 058
     Dates: start: 20060718
  2. GOLIMUMAB [Suspect]
     Indication: RHEUMATOID ARTHRITIS
     Route: 058
     Dates: start: 20060718

REACTIONS (1)
  - HISTOPLASMOSIS DISSEMINATED [None]
